FAERS Safety Report 16699534 (Version 1)
Quarter: 2019Q3

REPORT INFORMATION
  Report Type: Spontaneous
  Country: FR (occurrence: FR)
  Receive Date: 20190813
  Receipt Date: 20190813
  Transmission Date: 20191004
  Serious: Yes (Life-Threatening, Hospitalization)
  Sender: FDA-Public Use
  Company Number: FR-ALLERGAN-1932101US

PATIENT
  Sex: Male
  Weight: 75 kg

DRUGS (3)
  1. ANTALNOX [Suspect]
     Active Substance: NAPROXEN SODIUM
     Indication: POISONING DELIBERATE
     Dosage: 3300 MG
     Route: 048
     Dates: start: 20190124, end: 20190124
  2. ESCITALOPRAM OXALATE - BP [Suspect]
     Active Substance: ESCITALOPRAM OXALATE
     Indication: POISONING DELIBERATE
     Route: 048
     Dates: start: 20190124, end: 20190124
  3. BACLOFENE [Suspect]
     Active Substance: BACLOFEN
     Indication: POISONING DELIBERATE
     Dosage: 200 MG
     Route: 048
     Dates: start: 20190124, end: 20190124

REACTIONS (1)
  - Coma [Recovered/Resolved]

NARRATIVE: CASE EVENT DATE: 20190125
